FAERS Safety Report 12109188 (Version 1)
Quarter: 2016Q1

REPORT INFORMATION
  Report Type: Spontaneous
  Country: US (occurrence: None)
  Receive Date: 20160222
  Receipt Date: 20160222
  Transmission Date: 20160526
  Serious: No
  Sender: FDA-Public Use
  Company Number: None

PATIENT
  Age: 76 Year
  Sex: Female

DRUGS (16)
  1. HYDROCO/APAP [Concomitant]
     Active Substance: ACETAMINOPHEN\HYDROCODONE
  2. OYSCO 500+D [Concomitant]
  3. PROCHLORPER [Concomitant]
  4. METOPROL TAR [Concomitant]
  5. AMITRIPTYLIN [Concomitant]
     Active Substance: AMITRIPTYLINE
  6. FLUCONAZOLE. [Concomitant]
     Active Substance: FLUCONAZOLE
  7. SULFAMETHOXAZOLE-TRIMETHOPRIM (SMZ) [Concomitant]
     Active Substance: SULFAMETHOXAZOLE\TRIMETHOPRIM
  8. OXYBUTYNIN [Concomitant]
     Active Substance: OXYBUTYNIN
  9. IBRANCE [Suspect]
     Active Substance: PALBOCICLIB
     Indication: BREAST CANCER
     Route: 048
     Dates: start: 20151230
  10. FLUCONAZOLE. [Concomitant]
     Active Substance: FLUCONAZOLE
  11. AMPICILLIN [Concomitant]
     Active Substance: AMPICILLIN
  12. DIAZEPAM. [Concomitant]
     Active Substance: DIAZEPAM
  13. KLOR-CON [Concomitant]
     Active Substance: POTASSIUM CHLORIDE
  14. LETROZOLE. [Concomitant]
     Active Substance: LETROZOLE
  15. NIFEDIPINE. [Concomitant]
     Active Substance: NIFEDIPINE
  16. POT CHLORIDE [Concomitant]
     Active Substance: POTASSIUM CHLORIDE

REACTIONS (5)
  - Pain [None]
  - Fatigue [None]
  - Vomiting [None]
  - Chills [None]
  - Asthenia [None]

NARRATIVE: CASE EVENT DATE: 201601
